FAERS Safety Report 4842481-5 (Version None)
Quarter: 2005Q4

REPORT INFORMATION
  Report Type: 
  Country: None (occurrence: None)
  Receive Date: 20051201
  Receipt Date: 20051125
  Transmission Date: 20060501
  Serious: Yes (Death)
  Sender: FDA-Public Use
  Company Number: JP-AVENTIS-200513550JP

PATIENT
  Age: 61 Year
  Sex: Male
  Weight: 75 kg

DRUGS (3)
  1. TAXOTERE [Suspect]
     Indication: PROSTATE CANCER
     Route: 041
  2. TAXOTERE [Suspect]
     Route: 041
  3. ESTRACYT [Concomitant]
     Indication: PROSTATE CANCER
     Dosage: DOSE: 2 TABLETS
     Route: 048

REACTIONS (1)
  - INTERSTITIAL LUNG DISEASE [None]
